FAERS Safety Report 4311256-8 (Version None)
Quarter: 2004Q1

REPORT INFORMATION
  Report Type: 
  Country: None (occurrence: None)
  Receive Date: 20040302
  Receipt Date: 20031112
  Transmission Date: 20041129
  Serious: Yes (Disabling)
  Sender: FDA-Public Use
  Company Number: BDI-005621

PATIENT

DRUGS (4)
  1. ISOVUE-300 [Suspect]
     Indication: ARTERIOGRAM
     Dosage: IA
     Dates: start: 20031112, end: 20031112
  2. BENADRYL [Concomitant]
  3. SOLU-MEDROL [Concomitant]
  4. TAGAMET FOR INJECTION [Concomitant]

REACTIONS (1)
  - BLINDNESS CORTICAL [None]
